FAERS Safety Report 19723109 (Version 1)
Quarter: 2021Q3

REPORT INFORMATION
  Report Type: Other
  Country: DE (occurrence: DE)
  Receive Date: 20210820
  Receipt Date: 20210820
  Transmission Date: 20211014
  Serious: Yes (Hospitalization, Other)
  Sender: FDA-Public Use
  Company Number: DE-AUROBINDO-AUR-APL-2011-04650

PATIENT
  Sex: Male
  Weight: 3.07 kg

DRUGS (10)
  1. SERTRALINE AUROBINDO FILMCOATED TABLETS 100MG [Suspect]
     Active Substance: SERTRALINE HYDROCHLORIDE
     Dosage: 100 MILLIGRAM, DAILY
     Route: 064
  2. SERTRALINE AUROBINDO FILMCOATED TABLETS 100MG [Suspect]
     Active Substance: SERTRALINE HYDROCHLORIDE
     Dosage: 200 MILLIGRAM, DAILY
     Route: 064
  3. SERTRALINE AUROBINDO FILMCOATED TABLETS 100MG [Suspect]
     Active Substance: SERTRALINE HYDROCHLORIDE
     Dosage: 100 MG,DAILY,,FROM WEEK 11
     Route: 064
  4. L?THYROXINE [Concomitant]
     Active Substance: LEVOTHYROXINE
     Indication: AUTOIMMUNE THYROIDITIS
     Dosage: 150 ?G,DAILY,
     Route: 064
  5. SERTRALINE AUROBINDO FILMCOATED TABLETS 100MG [Suspect]
     Active Substance: SERTRALINE HYDROCHLORIDE
     Dosage: 150 MG,DAILY,
     Route: 064
  6. THYROXIN [Concomitant]
     Active Substance: LEVOTHYROXINE
     Indication: AUTOIMMUNE THYROIDITIS
     Dosage: UNK ?G,DAILY,,137.5 ?G/D/150?G
     Route: 064
  7. SERTRALINE AUROBINDO FILMCOATED TABLETS 100MG [Suspect]
     Active Substance: SERTRALINE HYDROCHLORIDE
     Dosage: 100 MILLIGRAM, DAILY
     Route: 064
  8. SERTRALINE AUROBINDO FILMCOATED TABLETS 100MG [Suspect]
     Active Substance: SERTRALINE HYDROCHLORIDE
     Indication: DEPRESSION
     Dosage: 150 MG,DAILY,
     Route: 064
  9. FOLIO [Concomitant]
     Active Substance: FOLIC ACID
     Indication: PROPHYLAXIS OF NEURAL TUBE DEFECT
     Dosage: .4 MG,DAILY,
     Route: 064
  10. SERTRALINE AUROBINDO FILMCOATED TABLETS 100MG [Suspect]
     Active Substance: SERTRALINE HYDROCHLORIDE
     Dosage: 150 MG,DAILY,
     Route: 064

REACTIONS (6)
  - Meconium in amniotic fluid [Recovered/Resolved]
  - Neonatal respiratory distress [Recovered/Resolved]
  - Neonatal respiratory acidosis [Recovered/Resolved]
  - Foetal exposure during pregnancy [Recovered/Resolved]
  - Torticollis [Recovering/Resolving]
  - Bradycardia neonatal [Recovered/Resolved]

NARRATIVE: CASE EVENT DATE: 20101112
